FAERS Safety Report 7996140-0 (Version None)
Quarter: 2011Q4

REPORT INFORMATION
  Report Type: 
  Country: None (occurrence: None)
  Receive Date: 20111220
  Receipt Date: 20111214
  Transmission Date: 20120403
  Serious: Yes (Other)
  Sender: FDA-Public Use
  Company Number: PHHY2011JP102960

PATIENT
  Sex: Male
  Weight: 64 kg

DRUGS (9)
  1. FAMOTIDINE [Concomitant]
     Indication: PROPHYLAXIS AGAINST GASTROINTESTINAL ULCER
     Dosage: 40 MG
     Route: 048
  2. DIOVAN [Concomitant]
     Indication: HYPERTENSION
     Dosage: 80 MG
     Route: 048
  3. SWORD [Concomitant]
     Route: 048
     Dates: start: 20111111, end: 20111114
  4. PREDNISOLONE [Concomitant]
     Indication: MYASTHENIA GRAVIS
     Dosage: 15 MG
     Route: 048
  5. ALLOPURINOL [Concomitant]
     Indication: HYPERURICAEMIA
     Dosage: 100 MG
     Route: 048
  6. LAMISIL [Suspect]
     Indication: TINEA PEDIS
     Dosage: 125 MG
     Route: 048
     Dates: start: 20111001, end: 20111117
  7. ZOSYN [Suspect]
     Dates: start: 20111114, end: 20111116
  8. TAMSULOSIN HCL [Concomitant]
     Indication: BENIGN PROSTATIC HYPERPLASIA
     Dosage: 0.2 MG, UNK
     Route: 048
  9. MESTINON [Concomitant]
     Dosage: 180 MG
     Route: 048

REACTIONS (2)
  - HEPATIC FUNCTION ABNORMAL [None]
  - PYREXIA [None]
